FAERS Safety Report 18232814 (Version 1)
Quarter: 2020Q3

REPORT INFORMATION
  Report Type: Spontaneous
  Country: US (occurrence: US)
  Receive Date: 20200904
  Receipt Date: 20200904
  Transmission Date: 20201103
  Serious: Yes (Other)
  Sender: FDA-Public Use
  Company Number: None

PATIENT
  Age: 30 Year

DRUGS (2)
  1. QUETIAPINE XR [Suspect]
     Active Substance: QUETIAPINE
  2. OLANZAPINE. [Suspect]
     Active Substance: OLANZAPINE

REACTIONS (1)
  - Therapy non-responder [None]

NARRATIVE: CASE EVENT DATE: 20200904
